FAERS Safety Report 7912205-3 (Version None)
Quarter: 2011Q4

REPORT INFORMATION
  Report Type: 
  Country: None (occurrence: None)
  Receive Date: 20111114
  Receipt Date: 20111102
  Transmission Date: 20120403
  Serious: Yes (Hospitalization)
  Sender: FDA-Public Use
  Company Number: US-SANOFI-AVENTIS-2011SA073435

PATIENT
  Age: 36 Year
  Sex: Male

DRUGS (3)
  1. FUROSEMIDE [Suspect]
     Route: 048
  2. CARVEDILOL [Suspect]
     Route: 048
  3. LISINOPRIL [Suspect]
     Route: 048

REACTIONS (3)
  - INTENTIONAL OVERDOSE [None]
  - MULTIPLE DRUG OVERDOSE INTENTIONAL [None]
  - CARDIOGENIC SHOCK [None]
